FAERS Safety Report 9989317 (Version 4)
Quarter: 2015Q1

REPORT INFORMATION
  Report Type: Spontaneous
  Country: US (occurrence: None)
  Receive Date: 20131025
  Receipt Date: 20150323
  Transmission Date: 20150721
  Serious: Yes (Other)
  Sender: FDA-Public Use
  Company Number: ADR-2011-10634

PATIENT
  Sex: Male

DRUGS (11)
  1. BUPIVICAINE INTRATHECAL [Suspect]
     Active Substance: BUPIVACAINE
  2. OXYCONTIN [Suspect]
     Active Substance: OXYCODONE HYDROCHLORIDE
  3. METHADONE [Suspect]
     Active Substance: METHADONE HYDROCHLORIDE
  4. SUFENTANIL [Suspect]
     Active Substance: SUFENTANIL
  5. FENTANYL TRANSDERMAL SYSTEM [Suspect]
     Active Substance: FENTANYL
  6. HYDROCODONE [Suspect]
     Active Substance: HYDROCODONE
  7. DILAUDID [Suspect]
     Active Substance: HYDROMORPHONE HYDROCHLORIDE
     Dosage: 3.0MG/DAY
  8. CLONIDINE. [Suspect]
     Active Substance: CLONIDINE
  9. COMPOUNDED BACLOFEN INTRATHECAL [Suspect]
     Active Substance: BACLOFEN
     Indication: PAIN
  10. LORTAB [Suspect]
     Active Substance: ACETAMINOPHEN\HYDROCODONE BITARTRATE
  11. NEUROTIN [Suspect]
     Active Substance: GABAPENTIN

REACTIONS (14)
  - Implant site inflammation [None]
  - Device kink [None]
  - Hypoaesthesia [None]
  - No therapeutic response [None]
  - Neuralgia [None]
  - Spinal pain [None]
  - Device connection issue [None]
  - Musculoskeletal pain [None]
  - Pain in extremity [None]
  - Weight decreased [None]
  - Procedural complication [None]
  - Pain [None]
  - Back pain [None]
  - Therapy change [None]
